FAERS Safety Report 9110074 (Version 2)
Quarter: 2013Q1

REPORT INFORMATION
  Report Type: Spontaneous
  Country: NL (occurrence: NL)
  Receive Date: 20130222
  Receipt Date: 20130308
  Transmission Date: 20140127
  Serious: Yes (Other)
  Sender: FDA-Public Use
  Company Number: NL-GILEAD-2013-0069377

PATIENT
  Age: 44 Year
  Sex: Male

DRUGS (3)
  1. EVIPLERA [Suspect]
     Indication: HIV INFECTION
     Dosage: UNK
     Dates: start: 20120720, end: 20130201
  2. TERBINAFINE [Concomitant]
     Indication: FUNGAL INFECTION
     Dosage: 250 MG, TID
     Dates: start: 20121029, end: 20130121
  3. AMITRIPTYLINE [Suspect]
     Dosage: 25 MG, TID

REACTIONS (4)
  - Genotype drug resistance test positive [Unknown]
  - Genotype drug resistance test positive [Unknown]
  - Virologic failure [Unknown]
  - Drug ineffective [Unknown]
